FAERS Safety Report 17554377 (Version 1)
Quarter: 2020Q1

REPORT INFORMATION
  Report Type: Spontaneous
  Country: GB (occurrence: GB)
  Receive Date: 20200318
  Receipt Date: 20200318
  Transmission Date: 20200409
  Serious: Yes (Other)
  Sender: FDA-Public Use
  Company Number: GB-ROCHE-2563626

PATIENT
  Age: 53 Year
  Sex: Female

DRUGS (2)
  1. RITUXIMAB. [Suspect]
     Active Substance: RITUXIMAB
     Indication: PRODUCT USED FOR UNKNOWN INDICATION
     Route: 042
     Dates: start: 20190725, end: 20190725
  2. PIRITON [Concomitant]
     Active Substance: CHLORPHENIRAMINE MALEATE

REACTIONS (12)
  - Periorbital swelling [Unknown]
  - Stridor [Unknown]
  - Dysphonia [Unknown]
  - Nasal congestion [Unknown]
  - Dyspnoea [Unknown]
  - Hypersensitivity [Unknown]
  - Vomiting [Unknown]
  - Lacrimation increased [Unknown]
  - Pruritus [Unknown]
  - Flushing [Unknown]
  - Cough [Unknown]
  - Wheezing [Unknown]

NARRATIVE: CASE EVENT DATE: 20190725
